FAERS Safety Report 12154851 (Version 1)
Quarter: 2016Q1

REPORT INFORMATION
  Report Type: Spontaneous
  Country: US (occurrence: None)
  Receive Date: 20160304
  Receipt Date: 20160304
  Transmission Date: 20160526
  Serious: Yes (Other)
  Sender: FDA-Public Use
  Company Number: None

PATIENT
  Age: 73 Year
  Sex: Male

DRUGS (1)
  1. GLIPIZIDE ER [Suspect]
     Active Substance: GLIPIZIDE
     Indication: DIABETES MELLITUS
     Dosage: 1 QD ORAL?ABOUT 3 WEEKS
     Route: 048

REACTIONS (2)
  - Diabetes mellitus inadequate control [None]
  - Product substitution issue [None]

NARRATIVE: CASE EVENT DATE: 20160303
